FAERS Safety Report 6431745-X (Version None)
Quarter: 2009Q4

REPORT INFORMATION
  Report Type: 
  Country: None (occurrence: None)
  Receive Date: 20091104
  Receipt Date: 20091019
  Transmission Date: 20100525
  Serious: Yes (Other)
  Sender: FDA-Public Use
  Company Number: 2009S1007959

PATIENT
  Age: 27 Year
  Sex: Male

DRUGS (3)
  1. PHOSPHOSODA FLAVOR NOT SPECIFIED [Suspect]
     Indication: COLONOSCOPY
     Dosage: X1; PO, X1; PO, X1; PO
     Route: 048
     Dates: start: 20070101, end: 20070101
  2. PHOSPHOSODA FLAVOR NOT SPECIFIED [Suspect]
     Indication: COLONOSCOPY
     Dosage: X1; PO, X1; PO, X1; PO
     Route: 048
     Dates: start: 20070101, end: 20070101
  3. PHOSPHOSODA FLAVOR NOT SPECIFIED [Suspect]
     Indication: COLONOSCOPY
     Dosage: X1; PO, X1; PO, X1; PO
     Route: 048
     Dates: start: 20070325, end: 20070325

REACTIONS (1)
  - RENAL DISORDER [None]
